FAERS Safety Report 15122481 (Version 2)
Quarter: 2018Q3

REPORT INFORMATION
  Report Type: Spontaneous
  Country: JP (occurrence: JP)
  Receive Date: 20180709
  Receipt Date: 20180824
  Transmission Date: 20181010
  Serious: Yes (Hospitalization, Other)
  Sender: FDA-Public Use
  Company Number: JP-PFIZER INC-2018268998

PATIENT
  Age: 85 Year
  Sex: Female
  Weight: 39 kg

DRUGS (12)
  1. AZULFIDINE EN?TABS [Suspect]
     Active Substance: SULFASALAZINE
     Indication: RHEUMATOID ARTHRITIS
     Dosage: 500 MG, 2X/DAY
     Route: 048
     Dates: start: 20180507, end: 20180626
  2. EDIROL [Concomitant]
     Active Substance: ELDECALCITOL
  3. DONEPEZIL. [Concomitant]
     Active Substance: DONEPEZIL
  4. NAUZELIN [Concomitant]
     Active Substance: DOMPERIDONE
  5. REBAMIPIDE [Concomitant]
     Active Substance: REBAMIPIDE
  6. TRAMCET [Concomitant]
     Active Substance: ACETAMINOPHEN\TRAMADOL
     Dosage: UNK UNK, AS NEEDED
  7. PANTOSIN [Concomitant]
     Active Substance: PANTETHINE
  8. ALINAMIN F [FURSULTIAMINE;RIBOFLAVIN] [Concomitant]
  9. CELECOX [Concomitant]
     Active Substance: CELECOXIB
  10. AZULFIDINE EN?TABS [Suspect]
     Active Substance: SULFASALAZINE
     Dosage: 1000 MG, 2X/DAY
     Route: 048
     Dates: start: 20180507
  11. PRIMPERAN [Concomitant]
     Active Substance: METOCLOPRAMIDE HYDROCHLORIDE
     Dosage: UNK UNK, AS NEEDED
  12. RECALBON [Concomitant]
     Active Substance: MINODRONIC ACID

REACTIONS (3)
  - Vomiting [Unknown]
  - Rectal perforation [Recovered/Resolved]
  - Constipation [Unknown]

NARRATIVE: CASE EVENT DATE: 20180617
